FAERS Safety Report 19040635 (Version 4)
Quarter: 2021Q2

REPORT INFORMATION
  Report Type: Spontaneous
  Country: US (occurrence: US)
  Receive Date: 20210323
  Receipt Date: 20210420
  Transmission Date: 20210717
  Serious: Yes (Other)
  Sender: FDA-Public Use
  Company Number: US-GLAXOSMITHKLINE-US2021AMR066105

PATIENT
  Sex: Female

DRUGS (3)
  1. ZEJULA [Suspect]
     Active Substance: NIRAPARIB
     Indication: MALIGNANT PERITONEAL NEOPLASM
     Dosage: 3 DF, QD  (3 CAPSULES OF 100 MG)
     Dates: start: 20210215
  2. ZEJULA [Suspect]
     Active Substance: NIRAPARIB
     Dosage: 300 MG, QD
     Dates: start: 20210217, end: 20210412
  3. ZEJULA [Suspect]
     Active Substance: NIRAPARIB
     Indication: AGRANULOCYTOSIS
     Dosage: 100 MG, QD

REACTIONS (8)
  - Carbohydrate antigen 125 increased [Unknown]
  - Product use in unapproved indication [Unknown]
  - Blood pressure increased [Not Recovered/Not Resolved]
  - Malignant neoplasm progression [Unknown]
  - Heart rate increased [Not Recovered/Not Resolved]
  - Anaemia [Unknown]
  - Constipation [Unknown]
  - Anxiety [Unknown]
